FAERS Safety Report 7684975-3 (Version None)
Quarter: 2011Q3

REPORT INFORMATION
  Report Type: 
  Country: None (occurrence: None)
  Receive Date: 20110816
  Receipt Date: 20110428
  Transmission Date: 20111222
  Serious: No
  Sender: FDA-Public Use
  Company Number: US-MYLANLABS-2011S1008888

PATIENT
  Sex: Female

DRUGS (1)
  1. CLORAZEPATE DIPOTASSIUM [Suspect]

REACTIONS (4)
  - RHINORRHOEA [None]
  - REACTION TO DRUG EXCIPIENTS [None]
  - PALPITATIONS [None]
  - HEADACHE [None]
